FAERS Safety Report 17053605 (Version 2)
Quarter: 2019Q4

REPORT INFORMATION
  Report Type: Report from Study
  Country: CA (occurrence: CA)
  Receive Date: 20191120
  Receipt Date: 20191127
  Transmission Date: 20200122
  Serious: Yes (Hospitalization, Other)
  Sender: FDA-Public Use
  Company Number: CA-JNJFOC-20190924879

PATIENT
  Age: 60 Year
  Sex: Male
  Weight: 106.4 kg

DRUGS (2)
  1. STELARA [Suspect]
     Active Substance: USTEKINUMAB
     Indication: CROHN^S DISEASE
     Dosage: STRENGTH = 90 MG
     Route: 058
     Dates: start: 20181213
  2. STELARA [Suspect]
     Active Substance: USTEKINUMAB
     Route: 058
     Dates: start: 20181213

REACTIONS (8)
  - Hypotension [Unknown]
  - Inguinal hernia [Unknown]
  - Generalised oedema [Unknown]
  - Haematoma infection [Recovering/Resolving]
  - Abdominal pain [Unknown]
  - Pleural effusion [Unknown]
  - Faeces soft [Unknown]
  - Umbilical hernia [Unknown]

NARRATIVE: CASE EVENT DATE: 201909
